FAERS Safety Report 24174806 (Version 1)
Quarter: 2024Q3

REPORT INFORMATION
  Report Type: Spontaneous
  Country: JP (occurrence: JP)
  Receive Date: 20240805
  Receipt Date: 20240805
  Transmission Date: 20241017
  Serious: Yes (Other)
  Sender: MERCK
  Company Number: JP-EPICPHARMA-JP-2021EPCLIT00136

PATIENT
  Age: 73 Year
  Sex: Male

DRUGS (16)
  1. EMEND [Interacting]
     Active Substance: APREPITANT
     Indication: Prophylaxis of nausea and vomiting
     Dosage: UNK
     Route: 048
  2. EMEND [Interacting]
     Active Substance: APREPITANT
     Indication: Nausea
  3. AMLODIPINE BESYLATE [Suspect]
     Active Substance: AMLODIPINE BESYLATE
     Dosage: UNK
  4. CISPLATIN [Interacting]
     Active Substance: CISPLATIN
     Dosage: UNK
  5. CISPLATIN [Interacting]
     Active Substance: CISPLATIN
     Dosage: UNK
     Route: 065
  6. DEXAMETHASONE SODIUM PHOSPHATE [Interacting]
     Active Substance: DEXAMETHASONE PHOSPHATE\DEXAMETHASONE SODIUM PHOSPHATE
     Dosage: UNK
  7. GEMCITABINE [Interacting]
     Active Substance: GEMCITABINE
     Dosage: UNK
  8. GEMCITABINE [Interacting]
     Active Substance: GEMCITABINE
     Dosage: UNK
     Route: 065
  9. PALONOSETRON [Interacting]
     Active Substance: PALONOSETRON
     Dosage: UNK
  10. PALONOSETRON [Interacting]
     Active Substance: PALONOSETRON
     Dosage: UNK
     Route: 065
  11. ATORVASTATIN [Concomitant]
     Active Substance: ATORVASTATIN
     Dosage: UNK
     Route: 065
  12. RANITIDINE [Concomitant]
     Active Substance: RANITIDINE
     Dosage: UNK
     Route: 065
  13. CANDESARTAN [Concomitant]
     Active Substance: CANDESARTAN
     Dosage: UNK
     Route: 065
  14. ASPIRIN [Concomitant]
     Active Substance: ASPIRIN
  15. MAGNESIUM OXIDE [Concomitant]
     Active Substance: MAGNESIUM OXIDE
     Dosage: UNK
     Route: 065
  16. SENNA LEAF [Concomitant]
     Active Substance: SENNA LEAF
     Dosage: UNK
     Route: 065

REACTIONS (2)
  - Atrioventricular block second degree [Unknown]
  - Drug interaction [Unknown]
